FAERS Safety Report 24229985 (Version 4)
Quarter: 2025Q1

REPORT INFORMATION
  Report Type: Report from Study
  Country: BR (occurrence: BR)
  Receive Date: 20240820
  Receipt Date: 20250311
  Transmission Date: 20250408
  Serious: Yes (Death, Life-Threatening, Hospitalization)
  Sender: PFIZER
  Company Number: BR-PFIZER INC-PV202400104763

PATIENT
  Age: 71 Year
  Sex: Female
  Weight: 53.1 kg

DRUGS (8)
  1. RUXIENCE [Suspect]
     Active Substance: RITUXIMAB-PVVR
     Indication: B-cell lymphoma
     Dosage: 375 MG/M2, WEEKLY
     Route: 042
     Dates: start: 20240709, end: 20240807
  2. RUXIENCE [Suspect]
     Active Substance: RITUXIMAB-PVVR
     Dosage: 375 MG/M2, WEEKLY
     Route: 042
     Dates: start: 20240807
  3. LASIX [Concomitant]
     Active Substance: FUROSEMIDE
     Indication: Pulmonary oedema
     Dosage: 40 MG, 4X/DAY
     Route: 042
     Dates: start: 20240724
  4. SIMETHICONE (DIMETHICONE) [Concomitant]
     Active Substance: DIMETHICONE
     Indication: Abdominal distension
     Route: 048
     Dates: start: 20240610, end: 20240821
  5. ONDANSETRON HYDROCHLORIDE [Concomitant]
     Active Substance: ONDANSETRON HYDROCHLORIDE
     Indication: Nausea
     Route: 048
     Dates: start: 20240610, end: 20240821
  6. BUPRENORPHINE HYDROCHLORIDE [Concomitant]
     Active Substance: BUPRENORPHINE HYDROCHLORIDE
     Indication: Abdominal pain upper
     Dosage: 10 MG, WEEKLY DERMAL
     Dates: start: 20240609, end: 20240821
  7. ACETAMINOPHEN [Concomitant]
     Active Substance: ACETAMINOPHEN
     Indication: Abdominal pain upper
     Route: 048
     Dates: start: 20240609, end: 20240821
  8. OMEPRAZOLE [Concomitant]
     Active Substance: OMEPRAZOLE
     Indication: Prophylaxis
     Dosage: 20 MG, 2X/DAY
     Route: 048
     Dates: start: 20240710, end: 20240821

REACTIONS (3)
  - Sepsis [Fatal]
  - Respiratory tract infection [Recovered/Resolved]
  - Pulmonary oedema [Recovered/Resolved]

NARRATIVE: CASE EVENT DATE: 20240801
